FAERS Safety Report 8216952-8 (Version None)
Quarter: 2012Q1

REPORT INFORMATION
  Report Type: 
  Country: None (occurrence: None)
  Receive Date: 20120319
  Receipt Date: 20120305
  Transmission Date: 20120608
  Serious: Yes (Death, Other)
  Sender: FDA-Public Use
  Company Number: GB-BRISTOL-MYERS SQUIBB COMPANY-16459471

PATIENT

DRUGS (2)
  1. INSULIN [Suspect]
     Route: 064
  2. METFORMIN HCL [Suspect]
     Route: 064

REACTIONS (2)
  - FOETAL DEATH [None]
  - HYPERGLYCAEMIA [None]
